FAERS Safety Report 22296320 (Version 1)
Quarter: 2023Q2

REPORT INFORMATION
  Report Type: Spontaneous
  Country: US (occurrence: US)
  Receive Date: 20230508
  Receipt Date: 20230508
  Transmission Date: 20230721
  Serious: No
  Sender: FDA-Public Use
  Company Number: US-BAUSCH-BL-2023-007040

PATIENT
  Sex: Male

DRUGS (2)
  1. FLUOROURACIL [Suspect]
     Active Substance: FLUOROURACIL
     Indication: Product used for unknown indication
     Dosage: EVERY WEEK FOR FIRST 4 WEEKS OF 6-WEEK CYCLE
     Route: 065
  2. FLUOROURACIL [Suspect]
     Active Substance: FLUOROURACIL
     Dosage: EVERY 2 WEEKS FOR FIRST 4 WEEKS OF 6-WEEK CYCLE
     Route: 065

REACTIONS (1)
  - Disease progression [Unknown]
